FAERS Safety Report 6600382-6 (Version None)
Quarter: 2010Q1

REPORT INFORMATION
  Report Type: 
  Country: None (occurrence: None)
  Receive Date: 20100224
  Receipt Date: 20100216
  Transmission Date: 20100710
  Serious: Yes (Other)
  Sender: FDA-Public Use
  Company Number: US-ASTRAZENECA-2010SE06739

PATIENT
  Age: 44 Year
  Sex: Female

DRUGS (21)
  1. QUETIAPINE [Interacting]
     Indication: HISTRIONIC PERSONALITY DISORDER
     Route: 048
  2. PROPOFOL [Suspect]
     Indication: INDUCTION OF ANAESTHESIA
     Route: 042
  3. FENTANYL [Interacting]
     Indication: INDUCTION OF ANAESTHESIA
     Route: 042
  4. FENTANYL [Interacting]
     Route: 042
  5. DULOXETINE HYDROCHLORIDE [Interacting]
     Indication: HISTRIONIC PERSONALITY DISORDER
  6. LITHIUM [Interacting]
  7. ONDANSETRON [Interacting]
     Indication: PROPHYLAXIS OF NAUSEA AND VOMITING
     Route: 042
  8. ONDANSETRON [Interacting]
     Route: 042
  9. ROCURONIUM BROMIDE [Suspect]
     Indication: INDUCTION AND MAINTENANCE OF ANAESTHESIA
     Route: 042
  10. ROCURONIUM BROMIDE [Suspect]
     Route: 042
  11. DESFLURANE IN OXYGENE [Suspect]
     Indication: MAINTENANCE OF ANAESTHESIA
     Route: 042
  12. HYDROCODONE BITARTRATE AND ACETAMINOPHEN [Suspect]
     Indication: POSTOPERATIVE ANALGESIA
     Route: 048
  13. HYDROMORPHONE HYDROCHLORIDE [Suspect]
     Indication: POSTOPERATIVE ANALGESIA
     Route: 042
  14. CLONAZEPAM [Concomitant]
     Indication: HISTRIONIC PERSONALITY DISORDER
  15. LAMOTRIGINE [Concomitant]
     Indication: CONVULSION
  16. TOPIRAMATE [Concomitant]
     Indication: CONVULSION
  17. MIDAZOLAM HCL [Concomitant]
     Route: 042
  18. LACTATED RINGER'S [Concomitant]
     Route: 042
  19. HEXTEND [Concomitant]
     Route: 042
  20. NEOSTIGMINE [Concomitant]
     Indication: NEUROMUSCULAR BLOCKADE REVERSAL
     Route: 042
  21. GLYCOPYRROLATE [Concomitant]
     Indication: NEUROMUSCULAR BLOCKADE REVERSAL
     Route: 042

REACTIONS (3)
  - COGNITIVE DISORDER [None]
  - DRUG INTERACTION [None]
  - SEROTONIN SYNDROME [None]
